FAERS Safety Report 8950763 (Version 1)
Quarter: 2012Q4

REPORT INFORMATION
  Report Type: 
  Country: US (occurrence: US)
  Receive Date: 20121207
  Receipt Date: 20121207
  Transmission Date: 20130627
  Serious: Yes (Life-Threatening)
  Sender: FDA-Public Use
  Company Number: US-GE HEALTHCARE MEDICAL DIAGNOSTICS-VISP-PR-1211L-0569

PATIENT
  Age: 39 Year
  Sex: Male

DRUGS (1)
  1. VISIPAQUE [Suspect]
     Indication: ANGINA PECTORIS
     Route: 013

REACTIONS (1)
  - Coronary no-reflow phenomenon [Recovered/Resolved]
